FAERS Safety Report 5024191-7 (Version None)
Quarter: 2006Q2

REPORT INFORMATION
  Report Type: 
  Country: None (occurrence: None)
  Receive Date: 20060607
  Receipt Date: 20060601
  Transmission Date: 20061013
  Serious: Yes (Disabling)
  Sender: FDA-Public Use
  Company Number: 2006-05-2098

PATIENT
  Age: 42 Year
  Sex: Female

DRUGS (2)
  1. CELESTONE [Suspect]
     Indication: TENDONITIS
     Dosage: 3 MG INTRAMUSCULAR
     Route: 030
     Dates: start: 20050314, end: 20050314
  2. XYLOCAINE [Concomitant]

REACTIONS (8)
  - BURSA DISORDER [None]
  - HYPERSENSITIVITY [None]
  - HYPOAESTHESIA [None]
  - IMPAIRED WORK ABILITY [None]
  - OEDEMA PERIPHERAL [None]
  - PAIN [None]
  - PRURITUS GENERALISED [None]
  - SHOULDER PAIN [None]
